FAERS Safety Report 14884062 (Version 1)
Quarter: 2018Q2

REPORT INFORMATION
  Report Type: Spontaneous
  Country: GB (occurrence: GB)
  Receive Date: 20180511
  Receipt Date: 20180511
  Transmission Date: 20180711
  Serious: Yes (Other)
  Sender: FDA-Public Use
  Company Number: GB-ELI_LILLY_AND_COMPANY-GB201805001182

PATIENT
  Age: 77 Year
  Sex: Male

DRUGS (1)
  1. HUMALOG [Suspect]
     Active Substance: INSULIN LISPRO
     Indication: PRODUCT USED FOR UNKNOWN INDICATION
     Dosage: 225 IU, DAILY
     Route: 058

REACTIONS (5)
  - Accidental underdose [Unknown]
  - Suicidal behaviour [Unknown]
  - Hypoglycaemia [Unknown]
  - Unresponsive to stimuli [Unknown]
  - Drug administration error [Unknown]

NARRATIVE: CASE EVENT DATE: 20180202
